FAERS Safety Report 7391588-X (Version None)
Quarter: 2011Q2

REPORT INFORMATION
  Report Type: 
  Country: None (occurrence: None)
  Receive Date: 20110404
  Receipt Date: 20110328
  Transmission Date: 20111010
  Serious: Yes (Death)
  Sender: FDA-Public Use
  Company Number: PHHO2011US04895

PATIENT
  Sex: Female
  Weight: 90.703 kg

DRUGS (7)
  1. ASPIRIN [Concomitant]
  2. EXFORGE [Concomitant]
  3. LORTAB [Concomitant]
  4. FEMARA [Suspect]
     Indication: BREAST CANCER
     Dosage: 2.5 MG, QD
     Route: 048
     Dates: start: 20071012
  5. TOPROL-XL [Concomitant]
  6. LISINOPRIL [Concomitant]
  7. NORVASC [Concomitant]

REACTIONS (1)
  - DEATH [None]
